FAERS Safety Report 10541945 (Version 1)
Quarter: 2014Q4

REPORT INFORMATION
  Report Type: Spontaneous
  Country: US (occurrence: US)
  Receive Date: 20141024
  Receipt Date: 20141024
  Transmission Date: 20150529
  Serious: Yes (Congenital Anomaly, Other)
  Sender: FDA-Public Use
  Company Number: US-ABBVIE-14P-163-1298220-00

PATIENT
  Sex: Male

DRUGS (1)
  1. DEPAKOTE [Suspect]
     Active Substance: DIVALPROEX SODIUM
     Indication: MATERNAL EXPOSURE TIMING UNSPECIFIED
     Route: 064

REACTIONS (30)
  - Chordee [Unknown]
  - Limb malformation [Unknown]
  - Prominent epicanthal folds [Unknown]
  - Laryngomalacia [Unknown]
  - Pain [Unknown]
  - Multiple injuries [Unknown]
  - Micrognathia [Unknown]
  - Congenital anomaly [Unknown]
  - Hypotonia [Unknown]
  - Emotional distress [Unknown]
  - Abnormal behaviour [Unknown]
  - Dysmorphism [Unknown]
  - Congenital hand malformation [Unknown]
  - Injury [Unknown]
  - Mental disorder [Unknown]
  - Anhedonia [Unknown]
  - Hypospadias [Unknown]
  - Foetal anticonvulsant syndrome [Unknown]
  - Hypertelorism of orbit [Unknown]
  - Congenital nose malformation [Unknown]
  - Congenital eyelid malformation [Unknown]
  - Cognitive disorder [Unknown]
  - Nervous system disorder [Unknown]
  - Feeling jittery [Unknown]
  - Low set ears [Unknown]
  - Pulmonary artery stenosis congenital [Unknown]
  - Foetal exposure during pregnancy [Unknown]
  - Weight gain poor [Unknown]
  - Fine motor delay [Unknown]
  - Economic problem [Unknown]
